FAERS Safety Report 6017304-1 (Version None)
Quarter: 2008Q4

REPORT INFORMATION
  Report Type: 
  Country: None (occurrence: None)
  Receive Date: 20081219
  Receipt Date: 20081203
  Transmission Date: 20090506
  Serious: Yes (Hospitalization)
  Sender: FDA-Public Use
  Company Number: 8040283

PATIENT
  Age: 21 Month
  Sex: Female

DRUGS (3)
  1. KEPPRA [Suspect]
     Dosage: 1000 MG 3/D TRP
     Route: 064
     Dates: start: 20060101, end: 20060101
  2. CARBAMAZEPINE [Suspect]
     Dosage: 400 MG 3/D TRP
     Route: 064
     Dates: start: 20060101, end: 20060101
  3. PHENOBARBITAL [Suspect]
     Dosage: 50 MG 3/D TRP
     Route: 064
     Dates: start: 20060101, end: 20060101

REACTIONS (3)
  - DRUG EXPOSURE DURING PREGNANCY [None]
  - MATERNAL DRUGS AFFECTING FOETUS [None]
  - NEUROBLASTOMA [None]
